FAERS Safety Report 8851827 (Version 1)
Quarter: 2012Q4

REPORT INFORMATION
  Report Type: 
  Country: US (occurrence: US)
  Receive Date: 20121019
  Receipt Date: 20121019
  Transmission Date: 20130627
  Serious: Yes (Hospitalization)
  Sender: FDA-Public Use
  Company Number: US-TARO PHARMACEUTICALS U.S.A., INC-2012SUN00151

PATIENT

DRUGS (2)
  1. WARFARIN SODIUM [Suspect]
     Indication: PRODUCT USED FOR UNKNOWN INDICATION
     Dosage: 2.5 mg, qd
     Route: 065
  2. CEFTAROLINE FOSAMIL [Interacting]
     Indication: CELLULITIS
     Dosage: UNK
     Route: 042

REACTIONS (3)
  - Drug interaction [Recovering/Resolving]
  - Haemarthrosis [Recovering/Resolving]
  - International normalised ratio increased [None]
